FAERS Safety Report 17638807 (Version 3)
Quarter: 2020Q2

REPORT INFORMATION
  Report Type: Spontaneous
  Country: US (occurrence: US)
  Receive Date: 20200407
  Receipt Date: 20200618
  Transmission Date: 20200713
  Serious: No
  Sender: FDA-Public Use
  Company Number: US-SA-2020SA086323

PATIENT

DRUGS (1)
  1. DUPIXENT [Suspect]
     Active Substance: DUPILUMAB
     Dosage: 300 MG
     Route: 058
     Dates: start: 202002

REACTIONS (3)
  - Ocular hyperaemia [Unknown]
  - Lacrimation increased [Unknown]
  - Eye pruritus [Unknown]

NARRATIVE: CASE EVENT DATE: 202003
